FAERS Safety Report 21488883 (Version 2)
Quarter: 2022Q4

REPORT INFORMATION
  Report Type: Spontaneous
  Country: JP (occurrence: JP)
  Receive Date: 20221021
  Receipt Date: 20221129
  Transmission Date: 20230113
  Serious: Yes (Hospitalization, Other)
  Sender: FDA-Public Use
  Company Number: JP-Teva Takeda Yakuhin-2021-JP-000876J

PATIENT
  Age: 73 Year
  Sex: Male
  Weight: 53 kg

DRUGS (1)
  1. ESTAZOLAM [Suspect]
     Active Substance: ESTAZOLAM
     Indication: Anxiolytic therapy
     Route: 048
     Dates: start: 2011

REACTIONS (12)
  - Prostate cancer [Recovered/Resolved]
  - Benign prostatic hyperplasia [Unknown]
  - Middle insomnia [Unknown]
  - Extrasystoles [Not Recovered/Not Resolved]
  - Peripheral coldness [Unknown]
  - Weight decreased [Unknown]
  - Limb discomfort [Unknown]
  - Tooth loss [Unknown]
  - Gamma-glutamyltransferase increased [Unknown]
  - Aspartate aminotransferase increased [Unknown]
  - Intentional dose omission [Unknown]
  - Intentional product use issue [Unknown]

NARRATIVE: CASE EVENT DATE: 20200101
